FAERS Safety Report 9879017 (Version 1)
Quarter: 2014Q1

REPORT INFORMATION
  Report Type: Spontaneous
  Country: US (occurrence: US)
  Receive Date: 20140206
  Receipt Date: 20140206
  Transmission Date: 20141002
  Serious: Yes (Hospitalization, Other)
  Sender: FDA-Public Use
  Company Number: US-PFIZER INC-2014033625

PATIENT
  Sex: Male

DRUGS (1)
  1. DILANTIN-125 [Suspect]
     Indication: CONVULSION
     Dosage: UNK

REACTIONS (6)
  - Haemorrhage [Unknown]
  - Dizziness [Unknown]
  - Vision blurred [Unknown]
  - Abdominal pain upper [Unknown]
  - Back pain [Unknown]
  - Headache [Unknown]
